FAERS Safety Report 13324612 (Version 1)
Quarter: 2017Q1

REPORT INFORMATION
  Report Type: Report from Study
  Country: BR (occurrence: BR)
  Receive Date: 20170310
  Receipt Date: 20170310
  Transmission Date: 20170428
  Serious: Yes (Other)
  Sender: FDA-Public Use
  Company Number: PHHY2017BR035601

PATIENT
  Sex: Female

DRUGS (1)
  1. FORASEQ [Suspect]
     Active Substance: BUDESONIDE\FORMOTEROL FUMARATE
     Indication: PRODUCT USED FOR UNKNOWN INDICATION
     Dosage: (BUDESONIDE 400, FORMOTEROL FUMARATE 12, UNITS NOT REPORTED)
     Route: 065

REACTIONS (7)
  - Lung disorder [Unknown]
  - Blindness [Unknown]
  - Dyspnoea [Unknown]
  - Fatigue [Unknown]
  - Emphysema [Unknown]
  - Asthma [Unknown]
  - Body height decreased [Unknown]
